FAERS Safety Report 9995702 (Version 1)
Quarter: 2014Q1

REPORT INFORMATION
  Report Type: Spontaneous
  Country: US (occurrence: None)
  Receive Date: 20140310
  Receipt Date: 20140310
  Transmission Date: 20141002
  Serious: Yes (Other)
  Sender: FDA-Public Use
  Company Number: None

PATIENT
  Age: 61 Year
  Sex: Male
  Weight: 73.94 kg

DRUGS (13)
  1. NEORAL [Suspect]
     Indication: HEART TRANSPLANT
     Dosage: 3 CAPS EVERY 12 HRS ORAL
     Route: 048
     Dates: start: 200906
  2. MYFORTIC [Suspect]
     Indication: HEART TRANSPLANT
     Dosage: 2 TAB BID
     Route: 048
     Dates: start: 200906
  3. AMARYL [Concomitant]
  4. AVAPRO [Concomitant]
  5. CARDIZEM [Concomitant]
  6. FERROUS SULFATE [Concomitant]
  7. FOLIC ACID [Concomitant]
  8. LASIX [Concomitant]
  9. LIPITOR [Concomitant]
  10. MAGNESIUM OXIDE [Concomitant]
  11. MULTIVITAMIN [Concomitant]
  12. PROTONIX [Concomitant]
  13. SYNTHROID [Concomitant]

REACTIONS (1)
  - Contusion [None]
